FAERS Safety Report 14145719 (Version 13)
Quarter: 2020Q2

REPORT INFORMATION
  Report Type: Report from Study
  Country: DE (occurrence: DE)
  Receive Date: 20171031
  Receipt Date: 20200608
  Transmission Date: 20200713
  Serious: Yes (Death, Life-Threatening, Hospitalization, Other)
  Sender: FDA-Public Use
  Company Number: DE-SA-2016SA238533

PATIENT

DRUGS (40)
  1. BOTOX [Concomitant]
     Active Substance: ONABOTULINUMTOXINA
     Indication: MUSCLE SPASTICITY
     Dosage: 50 IU
     Route: 030
     Dates: start: 20160411
  2. IBUPROFEN. [Concomitant]
     Active Substance: IBUPROFEN
     Indication: SPINAL OSTEOARTHRITIS
     Dosage: 800 MG
     Route: 065
     Dates: start: 20200107
  3. FACTOR XIII [Concomitant]
     Active Substance: FACTOR XIII CONCENTRATE (HUMAN)
     Dosage: 1250 IU
     Route: 065
     Dates: start: 2020
  4. FIBRINOGEN [Concomitant]
     Active Substance: FIBRINOGEN HUMAN
     Dosage: 4 G
     Route: 065
     Dates: start: 2020
  5. ALEMTUZUMAB [Suspect]
     Active Substance: ALEMTUZUMAB
     Indication: MULTIPLE SCLEROSIS
     Dosage: 12 MG
     Route: 041
     Dates: start: 20160912, end: 20160914
  6. BACLOFEN. [Concomitant]
     Active Substance: BACLOFEN
     Indication: MUSCLE SPASTICITY
     Dosage: 10 MG
     Route: 048
     Dates: start: 20151221
  7. HEPARIN [Concomitant]
     Active Substance: HEPARIN SODIUM
     Dosage: 10000 U/50 AT 10 ML/H
     Dates: start: 2020
  8. PREDNISOLONE. [Concomitant]
     Active Substance: PREDNISOLONE
     Dosage: 100 MG, QD
     Route: 065
     Dates: start: 2020
  9. IONOSTERIL [Concomitant]
     Dosage: 125 ML/H
     Route: 065
     Dates: start: 202001
  10. VITAMIN D [VITAMIN D NOS] [Concomitant]
     Active Substance: VITAMIN D NOS
     Dosage: UNK UNK, QD
     Route: 065
  11. FOLIC ACID. [Concomitant]
     Active Substance: FOLIC ACID
     Dosage: 5 MG, QD
     Route: 065
     Dates: start: 2020
  12. VITAMIN B12 [VITAMIN B12 NOS] [Concomitant]
     Active Substance: CYANOCOBALAMIN
     Dosage: UNK UNK, Q3M
     Route: 065
  13. QUETIAPINE. [Concomitant]
     Active Substance: QUETIAPINE
     Dosage: 25 MG, PRN
     Route: 065
     Dates: start: 2020
  14. ALEMTUZUMAB [Suspect]
     Active Substance: ALEMTUZUMAB
     Dosage: 12 MG
     Route: 041
     Dates: start: 20150817, end: 20150817
  15. BACLOFEN. [Concomitant]
     Active Substance: BACLOFEN
     Dosage: 25 MG, TID
     Route: 065
     Dates: start: 20200107
  16. SATIVEX [Concomitant]
     Active Substance: NABIXIMOLS
     Indication: MUSCLE SPASTICITY
     Dosage: 10 ML
     Route: 048
     Dates: start: 20150625
  17. XARELTO [Concomitant]
     Active Substance: RIVAROXABAN
     Dosage: UNK UNK, Q6M (ONCE 6 MONTHS)
     Route: 065
  18. EBRANTIL [URAPIDIL] [Concomitant]
     Active Substance: URAPIDIL
     Indication: BLOOD PRESSURE INCREASED
     Dosage: 100 MG/48 ML 3ML/H
     Route: 065
     Dates: start: 2020
  19. CYCLOPHOSPHAMIDE. [Concomitant]
     Active Substance: CYCLOPHOSPHAMIDE
     Indication: MICROSCOPIC POLYANGIITIS
     Dosage: 750 MG (0.7 G/M2 KOF)
     Route: 042
     Dates: start: 20200201
  20. SILDENAFIL. [Concomitant]
     Active Substance: SILDENAFIL
     Indication: PULMONARY ARTERIAL HYPERTENSION
  21. BACLOFEN. [Concomitant]
     Active Substance: BACLOFEN
     Dosage: 10 MG, QD
     Route: 065
     Dates: start: 20151221
  22. IBUPROFEN. [Concomitant]
     Active Substance: IBUPROFEN
     Indication: OSTEOARTHRITIS
     Dosage: 600 MG
     Route: 048
     Dates: start: 20160317
  23. PANTOZOLE [Concomitant]
     Active Substance: PANTOPRAZOLE SODIUM
     Dosage: 40 MG, QD
     Route: 065
  24. EXFORGE [Concomitant]
     Active Substance: AMLODIPINE BESYLATE\VALSARTAN
     Dosage: 5/160 MG, BID
     Route: 065
     Dates: start: 2020
  25. FAMPYRA [Concomitant]
     Active Substance: DALFAMPRIDINE
     Dosage: 10 MG, BID
     Route: 065
     Dates: start: 20200107
  26. FENISTIL [Concomitant]
     Active Substance: DIMETHINDENE
     Dosage: 4 MG, BID
     Route: 065
     Dates: start: 2020
  27. ACIC [ACICLOVIR] [Concomitant]
     Active Substance: ACYCLOVIR
     Dosage: 500 MG, QD
     Route: 042
     Dates: start: 2020
  28. MOXONIDINE [Concomitant]
     Active Substance: MOXONIDINE
     Dosage: 0.3 MG, QD
     Route: 065
     Dates: start: 2020
  29. SODIUM CHLORIDE 0.9% [Concomitant]
     Active Substance: SODIUM CHLORIDE
     Dosage: 5 ML/H
     Route: 065
     Dates: start: 202001
  30. METHYLPREDNISOLONE. [Concomitant]
     Active Substance: METHYLPREDNISOLONE
     Indication: MICROSCOPIC POLYANGIITIS
     Dosage: UNK
     Route: 065
     Dates: start: 2020
  31. SILDENAFIL. [Concomitant]
     Active Substance: SILDENAFIL
     Indication: RIGHT VENTRICULAR FAILURE
  32. ALEMTUZUMAB [Suspect]
     Active Substance: ALEMTUZUMAB
     Dosage: 12 MG
     Route: 041
     Dates: start: 20150810, end: 20150813
  33. FAMPYRA [Concomitant]
     Active Substance: DALFAMPRIDINE
     Indication: GAIT DISTURBANCE
     Dosage: 10 MG, BID
     Route: 048
     Dates: start: 20140115
  34. FOLIC ACID. [Concomitant]
     Active Substance: FOLIC ACID
     Dosage: 5 MG, QD
     Route: 065
  35. TRANEXAMIC ACID. [Concomitant]
     Active Substance: TRANEXAMIC ACID
     Dosage: 1 G
     Route: 065
     Dates: start: 2020
  36. HEPARIN [Concomitant]
     Active Substance: HEPARIN SODIUM
     Indication: PULMONARY EMBOLISM
     Dosage: 10000 U/50 WITH 2 ML/H
     Dates: start: 2020
  37. EBRANTIL [URAPIDIL] [Concomitant]
     Active Substance: URAPIDIL
     Dosage: 100 MG/50 ML 3ML/H
     Route: 065
     Dates: start: 2020
  38. PREDNISOLONE. [Concomitant]
     Active Substance: PREDNISOLONE
     Dosage: 10 MG, 1/4 QD
     Route: 065
     Dates: start: 2020
  39. PREDNISOLONE. [Concomitant]
     Active Substance: PREDNISOLONE
     Dosage: 5 MG, QD
     Route: 065
     Dates: start: 2020
  40. TACHOLIQUIN [Concomitant]
     Dosage: 2 INHALATIONS, QID
     Route: 055
     Dates: start: 2020

REACTIONS (14)
  - Sepsis [Unknown]
  - Subdural haematoma [Unknown]
  - Multiple organ dysfunction syndrome [Unknown]
  - Immune thrombocytopenia [Recovered/Resolved]
  - Pulmonary embolism [Recovering/Resolving]
  - Peripheral venous disease [Recovering/Resolving]
  - Thrombocytopenia [Recovering/Resolving]
  - Radius fracture [Recovering/Resolving]
  - Oedema peripheral [Not Recovered/Not Resolved]
  - Platelet count decreased [Not Recovered/Not Resolved]
  - Pyrexia [Recovered/Resolved]
  - Urinary tract infection [Unknown]
  - Dyspnoea [Not Recovered/Not Resolved]
  - Multiple organ dysfunction syndrome [Fatal]

NARRATIVE: CASE EVENT DATE: 20160912
